FAERS Safety Report 5009789-4 (Version None)
Quarter: 2006Q2

REPORT INFORMATION
  Report Type: 
  Country: None (occurrence: None)
  Receive Date: 20060523
  Receipt Date: 20060523
  Transmission Date: 20061013
  Serious: Yes (Hospitalization, Disabling)
  Sender: FDA-Public Use
  Company Number: None

PATIENT
  Age: 56 Year
  Sex: Male

DRUGS (10)
  1. SORAFENIB    200 MG     BAYER HEALTHCARE [Suspect]
     Indication: RENAL CELL CARCINOMA STAGE UNSPECIFIED
  2. NEXIUM [Concomitant]
  3. HYDROCHLOROTHIAZIDE [Concomitant]
  4. CYMBALTA [Concomitant]
  5. LASIX [Concomitant]
  6. ARANESP [Concomitant]
  7. COREG [Concomitant]
  8. LOTREL [Concomitant]
  9. MINOXIDIL [Concomitant]
  10. LANTUS [Concomitant]

REACTIONS (7)
  - ABASIA [None]
  - BLOOD CREATINE INCREASED [None]
  - FLUID OVERLOAD [None]
  - OBSTRUCTION [None]
  - OEDEMA PERIPHERAL [None]
  - PROTEINURIA [None]
  - SCROTAL OEDEMA [None]
